FAERS Safety Report 16702034 (Version 1)
Quarter: 2019Q3

REPORT INFORMATION
  Report Type: Spontaneous
  Country: US (occurrence: US)
  Receive Date: 20190627
  Receipt Date: 20190627
  Transmission Date: 20191004
  Serious: No
  Sender: FDA-Public Use
  Company Number: None

PATIENT
  Age: 53 Year
  Sex: Female

DRUGS (1)
  1. REPATHA [Suspect]
     Active Substance: EVOLOCUMAB
     Dosage: ?          OTHER
     Route: 058
     Dates: start: 201905

REACTIONS (6)
  - Cough [None]
  - Muscle spasms [None]
  - Oropharyngeal pain [None]
  - Nasal congestion [None]
  - Restless legs syndrome [None]
  - Diarrhoea [None]

NARRATIVE: CASE EVENT DATE: 20190627
